FAERS Safety Report 21361200 (Version 1)
Quarter: 2022Q3

REPORT INFORMATION
  Report Type: Spontaneous
  Country: US (occurrence: US)
  Receive Date: 20220921
  Receipt Date: 20220921
  Transmission Date: 20221027
  Serious: Yes (Other)
  Sender: FDA-Public Use
  Company Number: US-NOVARTISPH-NVSC2020US359273

PATIENT
  Age: 5 Decade
  Sex: Female

DRUGS (7)
  1. ROCURONIUM BROMIDE [Suspect]
     Active Substance: ROCURONIUM BROMIDE
     Indication: Endotracheal intubation
     Dosage: 30 MG
     Route: 065
  2. PROPOFOL [Suspect]
     Active Substance: PROPOFOL
     Indication: Induction and maintenance of anaesthesia
     Dosage: 150 MG, INDUCTION DOSE
     Route: 065
  3. PROPOFOL [Suspect]
     Active Substance: PROPOFOL
     Dosage: UNK, 100 UG/KG.MIN
     Route: 042
  4. PROPOFOL [Suspect]
     Active Substance: PROPOFOL
     Dosage: UNK
     Route: 040
  5. MIDAZOLAM [Suspect]
     Active Substance: MIDAZOLAM
     Indication: Premedication
     Dosage: 2 MG
     Route: 065
  6. DEXMEDETOMIDINE [Suspect]
     Active Substance: DEXMEDETOMIDINE
     Indication: Maintenance of anaesthesia
     Dosage: UNK, 0.2 ?G/(KG.H)
     Route: 042
  7. KETAMINE [Suspect]
     Active Substance: KETAMINE
     Indication: Maintenance of anaesthesia
     Dosage: UNK, 0.2 ?G/(KG.H)
     Route: 042

REACTIONS (1)
  - Unwanted awareness during anaesthesia [Unknown]
